FAERS Safety Report 7809328 (Version 5)
Quarter: 2013Q3

REPORT INFORMATION
  Report Type: Spontaneous
  Country: FR (occurrence: FR)
  Receive Date: 20110211
  Receipt Date: 20130702
  Transmission Date: 20140515
  Serious: Yes (Other)
  Sender: FDA-Public Use
  Company Number: FR-ELI_LILLY_AND_COMPANY-FR201102000178

PATIENT
  Age: 45 Year
  Sex: Male

DRUGS (6)
  1. ZYPADHERA [Suspect]
     Indication: SCHIZOPHRENIA
     Dosage: 300 MG, EVERY 2 WEEKS
     Route: 030
     Dates: start: 20100720, end: 20110201
  2. ZYPREXA [Suspect]
     Indication: SCHIZOPHRENIA
     Dosage: 30 MG, DAILY (1/D)
     Route: 048
     Dates: start: 20100628, end: 20100721
  3. VALIUM [Concomitant]
     Indication: SCHIZOPHRENIA
     Dosage: 10 MG, DAILY (1/D)
     Route: 048
     Dates: start: 201006
  4. REYATAZ [Concomitant]
     Indication: HIV INFECTION
     Dosage: 300 MG, UNK
     Route: 048
  5. BACTRIM [Concomitant]
     Indication: HIV INFECTION
     Route: 048
  6. TRUVADA [Concomitant]
     Indication: HIV INFECTION
     Route: 048

REACTIONS (18)
  - Altered state of consciousness [Recovered/Resolved]
  - Cyanosis [Recovered/Resolved]
  - Oxygen saturation decreased [Recovered/Resolved]
  - Disorientation [Recovered/Resolved]
  - Confusional state [Recovered/Resolved]
  - Agitation [Not Recovered/Not Resolved]
  - Aggression [Not Recovered/Not Resolved]
  - Anxiety [Recovered/Resolved]
  - Ataxia [Recovered/Resolved]
  - Dizziness [Recovered/Resolved]
  - Dysarthria [Recovered/Resolved]
  - Extrapyramidal disorder [Recovered/Resolved]
  - Sedation [Recovered/Resolved]
  - Asthenia [Recovered/Resolved]
  - Negativism [Not Recovered/Not Resolved]
  - Incoherent [Recovered/Resolved]
  - Hypotension [Recovered/Resolved]
  - Prescribed overdose [Unknown]
